FAERS Safety Report 6550614-8 (Version None)
Quarter: 2010Q1

REPORT INFORMATION
  Report Type: 
  Country: None (occurrence: None)
  Receive Date: 20100125
  Receipt Date: 20090210
  Transmission Date: 20100710
  Serious: No
  Sender: FDA-Public Use
  Company Number: US-TYCO HEALTHCARE/MALLINCKRODT-T200900315

PATIENT
  Sex: Female
  Weight: 53.515 kg

DRUGS (4)
  1. OPTIRAY 350 [Suspect]
     Indication: COMPUTERISED TOMOGRAM
     Dosage: UNK
     Dates: start: 20090209, end: 20090209
  2. CIPRO                              /00697201/ [Concomitant]
     Indication: ABDOMINAL PAIN
     Dosage: UNK
  3. VICODIN [Concomitant]
     Indication: ABDOMINAL PAIN
     Dosage: UNK
  4. MULTIVITAMIN                       /00831701/ [Concomitant]
     Indication: SUPPLEMENTATION THERAPY
     Dosage: UNK

REACTIONS (1)
  - HYPERSENSITIVITY [None]
